FAERS Safety Report 8180661-4 (Version None)
Quarter: 2012Q1

REPORT INFORMATION
  Report Type: 
  Country: None (occurrence: None)
  Receive Date: 20120302
  Receipt Date: 20120222
  Transmission Date: 20120608
  Serious: Yes (Hospitalization)
  Sender: FDA-Public Use
  Company Number: DE-JNJFOC-20120211469

PATIENT
  Age: 65 Year
  Sex: Male

DRUGS (8)
  1. DIAZEPAM [Suspect]
     Route: 048
     Dates: start: 20110913, end: 20110913
  2. DIAZEPAM [Suspect]
     Route: 048
     Dates: start: 20110903, end: 20110904
  3. DIAZEPAM [Suspect]
     Indication: PRODUCT USED FOR UNKNOWN INDICATION
     Route: 048
     Dates: start: 20110912, end: 20110912
  4. HALDOL [Suspect]
     Indication: PRODUCT USED FOR UNKNOWN INDICATION
     Route: 048
     Dates: start: 20110903, end: 20110909
  5. HALDOL [Suspect]
     Route: 048
     Dates: start: 20110910, end: 20110913
  6. DIAZEPAM [Suspect]
     Route: 048
     Dates: start: 20110908, end: 20110909
  7. DIAZEPAM [Suspect]
     Route: 048
     Dates: start: 20110905, end: 20110907
  8. DIAZEPAM [Suspect]
     Route: 048
     Dates: start: 20110910, end: 20110911

REACTIONS (3)
  - ENCEPHALITIS HERPES [None]
  - CRITICAL ILLNESS POLYNEUROPATHY [None]
  - PNEUMONIA [None]
